FAERS Safety Report 21800502 (Version 1)
Quarter: 2022Q4

REPORT INFORMATION
  Report Type: Report from Study
  Country: US (occurrence: US)
  Receive Date: 20221230
  Receipt Date: 20221230
  Transmission Date: 20230113
  Serious: Yes (Other)
  Sender: FDA-Public Use
  Company Number: US-ABBVIE-4251462

PATIENT
  Age: 69 Year
  Sex: Female

DRUGS (2)
  1. HUMIRA [Suspect]
     Active Substance: ADALIMUMAB
     Indication: Product used for unknown indication
     Dosage: CITRATE FREE
     Route: 058
     Dates: start: 20161228
  2. HUMIRA [Suspect]
     Active Substance: ADALIMUMAB
     Dosage: CITRATE FREE
     Route: 058
     Dates: start: 20221212

REACTIONS (18)
  - Myocardial infarction [Recovering/Resolving]
  - Muscle spasms [Not Recovered/Not Resolved]
  - Stress cardiomyopathy [Recovering/Resolving]
  - Insomnia [Not Recovered/Not Resolved]
  - Arthralgia [Not Recovered/Not Resolved]
  - Cataract [Unknown]
  - Vision blurred [Not Recovered/Not Resolved]
  - Bundle branch block left [Recovering/Resolving]
  - Emotional disorder [Not Recovered/Not Resolved]
  - Musculoskeletal disorder [Unknown]
  - Feeling abnormal [Unknown]
  - Back pain [Not Recovered/Not Resolved]
  - Inflammatory marker increased [Not Recovered/Not Resolved]
  - Visual impairment [Not Recovered/Not Resolved]
  - Depression [Not Recovered/Not Resolved]
  - Bipolar disorder [Not Recovered/Not Resolved]
  - Fatigue [Not Recovered/Not Resolved]
  - Restless legs syndrome [Not Recovered/Not Resolved]

NARRATIVE: CASE EVENT DATE: 20201227
